FAERS Safety Report 10159598 (Version 2)
Quarter: 2014Q2

REPORT INFORMATION
  Report Type: Spontaneous
  Country: US (occurrence: US)
  Receive Date: 20140508
  Receipt Date: 20140508
  Transmission Date: 20141212
  Serious: No
  Sender: FDA-Public Use
  Company Number: US-GLAXOSMITHKLINE-A0650257A

PATIENT
  Age: 52 Year
  Sex: Female

DRUGS (7)
  1. TYKERB [Suspect]
     Indication: BREAST CANCER
     Dosage: 5TAB PER DAY
     Route: 048
     Dates: start: 20070428
  2. HERCEPTIN [Concomitant]
  3. AREDIA [Concomitant]
  4. SYNTHROID [Concomitant]
  5. AMARYL [Concomitant]
  6. WELLBUTRIN [Concomitant]
  7. COZAAR [Concomitant]

REACTIONS (5)
  - Cheilitis [Unknown]
  - Lip oedema [Unknown]
  - Dry skin [Unknown]
  - Nasopharyngitis [Not Recovered/Not Resolved]
  - Malaise [Not Recovered/Not Resolved]
